FAERS Safety Report 14093423 (Version 1)
Quarter: 2017Q4

REPORT INFORMATION
  Report Type: Report from Study
  Country: CA (occurrence: CA)
  Receive Date: 20171016
  Receipt Date: 20171016
  Transmission Date: 20180321
  Serious: Yes (Hospitalization)
  Sender: FDA-Public Use
  Company Number: CA-JNJFOC-20171012081

PATIENT
  Age: 26 Year
  Sex: Male

DRUGS (1)
  1. STELARA [Suspect]
     Active Substance: USTEKINUMAB
     Indication: CROHN^S DISEASE
     Dosage: STRENGTH = 130 MG
     Route: 042
     Dates: start: 20171011

REACTIONS (11)
  - Flushing [Unknown]
  - Body temperature decreased [Unknown]
  - Chills [Not Recovered/Not Resolved]
  - Infusion related reaction [Not Recovered/Not Resolved]
  - Hypotension [Recovered/Resolved]
  - Ocular discomfort [Unknown]
  - Nausea [Unknown]
  - Eyelid oedema [Unknown]
  - Vision blurred [Unknown]
  - Chest discomfort [Not Recovered/Not Resolved]
  - Paraesthesia [Unknown]

NARRATIVE: CASE EVENT DATE: 20171011
